FAERS Safety Report 21847822 (Version 2)
Quarter: 2023Q1

REPORT INFORMATION
  Report Type: Spontaneous
  Country: JP (occurrence: JP)
  Receive Date: 20230111
  Receipt Date: 20230125
  Transmission Date: 20230418
  Serious: Yes (Death, Hospitalization, Other)
  Sender: FDA-Public Use
  Company Number: JP-BRISTOL-MYERS SQUIBB COMPANY-2022-071785

PATIENT
  Age: 55 Year
  Sex: Female
  Weight: 49.7 kg

DRUGS (4)
  1. YERVOY [Suspect]
     Active Substance: IPILIMUMAB
     Indication: Malignant melanoma
     Route: 041
     Dates: start: 20210607, end: 20210824
  2. OPDIVO [Suspect]
     Active Substance: NIVOLUMAB
     Indication: Malignant melanoma
     Route: 041
     Dates: start: 20210607, end: 20210824
  3. OPDIVO [Suspect]
     Active Substance: NIVOLUMAB
     Route: 041
     Dates: start: 20211001, end: 20211029
  4. MIROGABALIN BESYLATE [Concomitant]
     Active Substance: MIROGABALIN BESYLATE
     Indication: Prophylaxis
     Route: 048
     Dates: start: 20210409, end: 20210609

REACTIONS (8)
  - Metastases to central nervous system [Fatal]
  - Tumour pseudoprogression [Unknown]
  - Pyrexia [Unknown]
  - Dyspnoea [Unknown]
  - Pleural effusion [Unknown]
  - Immune-mediated hepatic disorder [Recovering/Resolving]
  - Skin disorder [Recovered/Resolved]
  - Adrenocortical insufficiency acute [Recovering/Resolving]

NARRATIVE: CASE EVENT DATE: 20210614
